FAERS Safety Report 14777736 (Version 2)
Quarter: 2018Q2

REPORT INFORMATION
  Report Type: Spontaneous
  Country: US (occurrence: US)
  Receive Date: 20180419
  Receipt Date: 20180507
  Transmission Date: 20180711
  Serious: No
  Sender: FDA-Public Use
  Company Number: US-PFIZER INC-2018159383

PATIENT
  Age: 45 Year
  Sex: Female

DRUGS (3)
  1. ADVIL [Suspect]
     Active Substance: IBUPROFEN
     Indication: PAIN
     Dosage: 200 MG, 3X/DAY
     Route: 048
     Dates: start: 20180407
  2. ADVIL [Suspect]
     Active Substance: IBUPROFEN
     Indication: BACK PAIN
  3. ADVIL [Suspect]
     Active Substance: IBUPROFEN
     Indication: DYSMENORRHOEA

REACTIONS (4)
  - Product use complaint [Recovered/Resolved]
  - Poor quality drug administered [Recovered/Resolved]
  - Dysphagia [Recovered/Resolved]
  - Product physical issue [Unknown]

NARRATIVE: CASE EVENT DATE: 201804
